FAERS Safety Report 8776704 (Version 2)
Quarter: 2012Q4

REPORT INFORMATION
  Report Type: 
  Country: IE (occurrence: IE)
  Receive Date: 20120907
  Receipt Date: 20121120
  Transmission Date: 20130627
  Serious: Yes (Other)
  Sender: FDA-Public Use
  Company Number: IE-ELI_LILLY_AND_COMPANY-IE201207006633

PATIENT
  Sex: Female
  Weight: 64 kg

DRUGS (4)
  1. STRATTERA [Suspect]
     Indication: ATTENTION DEFICIT/HYPERACTIVITY DISORDER
     Dosage: 20 mg, bid
     Route: 048
     Dates: start: 20100108
  2. STRATTERA [Suspect]
     Dosage: 40 mg, bid
     Route: 048
  3. MINERALS NOS [Concomitant]
  4. VITAMINS NOS [Concomitant]

REACTIONS (7)
  - Dermatitis bullous [Recovered/Resolved]
  - Sunburn [Recovered/Resolved]
  - Eyelid oedema [Recovered/Resolved]
  - Swollen tongue [Recovered/Resolved]
  - Oedema mouth [Recovered/Resolved]
  - Nausea [Recovered/Resolved]
  - Dizziness [Recovered/Resolved]
